FAERS Safety Report 6118024-5 (Version None)
Quarter: 2009Q1

REPORT INFORMATION
  Report Type: 
  Country: None (occurrence: None)
  Receive Date: 20090314
  Receipt Date: 20090202
  Transmission Date: 20090719
  Serious: No
  Sender: FDA-Public Use
  Company Number: US-ABBOTT-09P-163-0501619-00

PATIENT
  Sex: Female
  Weight: 63.56 kg

DRUGS (4)
  1. HUMIRA [Suspect]
     Indication: CROHN'S DISEASE
     Dates: start: 20090121
  2. PROTONIX [Concomitant]
     Indication: GASTROOESOPHAGEAL REFLUX DISEASE
  3. POTASSIUM CHLORIDE [Concomitant]
     Indication: SMALL INTESTINAL RESECTION
  4. VITAMIN B-12 [Concomitant]
     Indication: SMALL INTESTINAL RESECTION

REACTIONS (5)
  - INJECTION SITE URTICARIA [None]
  - PAIN OF SKIN [None]
  - PRURITUS [None]
  - RASH [None]
  - RASH PAPULAR [None]
